FAERS Safety Report 18302214 (Version 3)
Quarter: 2020Q4

REPORT INFORMATION
  Report Type: Other
  Country: US (occurrence: US)
  Receive Date: 20200923
  Receipt Date: 20201103
  Transmission Date: 20210113
  Serious: Yes (Death, Hospitalization, Other)
  Sender: FDA-Public Use
  Company Number: US-ROCHE-2682755

PATIENT
  Age: 62 Year
  Sex: Male

DRUGS (26)
  1. TACROLIMUS. [Concomitant]
     Active Substance: TACROLIMUS
     Indication: COMPLICATIONS OF TRANSPLANTED KIDNEY
     Dosage: TAKE 3 CAPSULES BY MOUTH 2 TIMES DAILY
     Route: 048
  2. FOLVITE [Concomitant]
     Active Substance: FOLIC ACID
     Indication: FOLATE DEFICIENCY
     Route: 048
  3. SENNA PLUS [Concomitant]
     Active Substance: DOCUSATE SODIUM\SENNOSIDES\SENNOSIDES A AND B
     Indication: CONSTIPATION
     Dosage: TAKE 8.6 TO 50 MG TABLET, 2 TABLETS BY MOUTH 1 TIME DAILY AS NEEDED
     Route: 048
  4. PEMETREXED DISODIUM [Concomitant]
     Active Substance: PEMETREXED DISODIUM
  5. ONDANSETRON HCL [Concomitant]
     Active Substance: ONDANSETRON HYDROCHLORIDE
     Route: 042
  6. MAGNESIUM OXIDE. [Concomitant]
     Active Substance: MAGNESIUM OXIDE
     Indication: HYPOMAGNESAEMIA
     Route: 048
  7. ROXICODONE [Concomitant]
     Active Substance: OXYCODONE HYDROCHLORIDE
     Dosage: TAKE 1 TABLET BY MOUTH EVERY 4 HOURS AS NEEDED FOR MODERATE PAIN
     Route: 048
  8. AVASTIN [Suspect]
     Active Substance: BEVACIZUMAB
     Indication: LUNG NEOPLASM MALIGNANT
     Dosage: DATE OF TREATMENT- 21/FEB/2020,13/DEC/2019, 400 MG - 1 QUANTITY, 100 MG - 2 QUANTITY
     Route: 042
  9. LISINOPRIL. [Concomitant]
     Active Substance: LISINOPRIL
     Indication: HYPERTENSION
     Dosage: TAKE 1 TABLET BY MOUTH DAILY FOR 30 DAYS
     Route: 048
  10. NORVASC [Concomitant]
     Active Substance: AMLODIPINE BESYLATE
     Indication: HYPERTENSION
     Route: 048
  11. ZESTRIL [Concomitant]
     Active Substance: LISINOPRIL
     Indication: HYPERTENSION
     Route: 048
  12. MYFORTIC [Concomitant]
     Active Substance: MYCOPHENOLATE SODIUM
     Indication: COMPLICATIONS OF TRANSPLANTED PANCREAS
     Route: 048
  13. AMLODIPINE [Concomitant]
     Active Substance: AMLODIPINE BESYLATE
     Indication: HYPERTENSION
     Dosage: TAKE 1 TABLET BY MOUTH DAILY FOR 30 DAYS
     Route: 048
  14. CALCIUM CARBONATE. [Concomitant]
     Active Substance: CALCIUM CARBONATE
     Indication: DYSPEPSIA
     Dosage: TAKE 1 TABLET BY MOUTH DAILY FOR 30 DAYS
     Route: 048
  15. AVASTIN [Suspect]
     Active Substance: BEVACIZUMAB
     Indication: LUNG NEOPLASM MALIGNANT
  16. LIDODERM [Concomitant]
     Active Substance: LIDOCAINE
     Indication: ALLODYNIA
     Route: 061
  17. LIDOCAINE. [Concomitant]
     Active Substance: LIDOCAINE
     Indication: ALLODYNIA
     Dosage: PLACE 1 PATCH ON TO THE SKIN DAILY FOR 14 DAYS
  18. DEXAMETHASONE SODIUM PHOSPHATE. [Concomitant]
     Active Substance: DEXAMETHASONE SODIUM PHOSPHATE
  19. CYANOCOBALAMIN. [Concomitant]
     Active Substance: CYANOCOBALAMIN
     Route: 065
  20. AVASTIN [Suspect]
     Active Substance: BEVACIZUMAB
     Indication: METASTASES TO BONE
  21. PANTOPRAZOLE [Concomitant]
     Active Substance: PANTOPRAZOLE
     Indication: DYSPEPSIA
  22. CYCLOBENZAPRINE. [Concomitant]
     Active Substance: CYCLOBENZAPRINE
     Indication: MUSCLE SPASMS
     Dosage: TAKE 1 TABLET BY MOUTH 3 TIMES DAILY FOR 7 DAYS
     Route: 048
  23. TUMS [Concomitant]
     Active Substance: CALCIUM CARBONATE
     Indication: DYSPEPSIA
     Route: 048
  24. ACETAMINOPHEN. [Concomitant]
     Active Substance: ACETAMINOPHEN
     Indication: PAIN
     Dosage: TAKE 2 TABLETS BY MOUTH 3 TIMES DAILY FOR 14 DAYS
     Route: 048
  25. FOLIC ACID. [Concomitant]
     Active Substance: FOLIC ACID
     Indication: FOLATE DEFICIENCY
     Route: 048
     Dates: start: 20200404
  26. OXYCODONE [Concomitant]
     Active Substance: OXYCODONE
     Indication: PAIN
     Route: 048

REACTIONS (12)
  - Retching [Unknown]
  - Hypoaesthesia [Unknown]
  - Back pain [Unknown]
  - Musculoskeletal chest pain [Unknown]
  - Delirium [Unknown]
  - Hypertension [Unknown]
  - Blindness [Unknown]
  - Pancytopenia [Unknown]
  - Confusional state [Unknown]
  - Limbic encephalitis [Fatal]
  - Hydronephrosis [Unknown]
  - Hallucination [Unknown]

NARRATIVE: CASE EVENT DATE: 20200331
